FAERS Safety Report 6914793-2 (Version None)
Quarter: 2010Q3

REPORT INFORMATION
  Report Type: 
  Country: None (occurrence: None)
  Receive Date: 20100809
  Receipt Date: 20100805
  Transmission Date: 20110219
  Serious: Yes (Other)
  Sender: FDA-Public Use
  Company Number: US-BRISTOL-MYERS SQUIBB COMPANY-15227044

PATIENT
  Sex: Female

DRUGS (4)
  1. TRAZODONE HCL [Suspect]
  2. ZYPREXA [Suspect]
     Dosage: FORMULATION:TABS
     Route: 065
  3. CYMBALTA [Suspect]
     Dosage: FORMULATION:CAPSULE
     Route: 065
  4. CELEXA [Suspect]

REACTIONS (1)
  - SEROTONIN SYNDROME [None]
